FAERS Safety Report 10099224 (Version 2)
Quarter: 2014Q2

REPORT INFORMATION
  Report Type: Spontaneous
  Country: US (occurrence: US)
  Receive Date: 20140423
  Receipt Date: 20140423
  Transmission Date: 20141212
  Serious: Yes (Hospitalization)
  Sender: FDA-Public Use
  Company Number: US-GILEAD-2013-0067944

PATIENT
  Age: 81 Year
  Sex: Male
  Weight: 79.36 kg

DRUGS (1)
  1. LETAIRIS [Suspect]
     Indication: PRODUCT USED FOR UNKNOWN INDICATION
     Dosage: 5 MG, UNK
     Route: 048
     Dates: start: 20121016, end: 20121227

REACTIONS (3)
  - Anaemia [Recovered/Resolved]
  - Fluid retention [Recovered/Resolved]
  - Asthenia [Recovered/Resolved]
